FAERS Safety Report 6709716-5 (Version None)
Quarter: 2010Q2

REPORT INFORMATION
  Report Type: 
  Country: None (occurrence: None)
  Receive Date: 20100504
  Receipt Date: 20100426
  Transmission Date: 20101027
  Serious: Yes (Hospitalization, Other)
  Sender: FDA-Public Use
  Company Number: US-JNJFOC-20100105776

PATIENT
  Sex: Female
  Weight: 86.64 kg

DRUGS (2)
  1. LEVAQUIN [Suspect]
     Indication: NASOPHARYNGITIS
     Route: 048
     Dates: start: 20091223, end: 20091224
  2. ROBITUSSIN WITH CODEINE [Concomitant]
     Indication: COUGH
     Route: 048
     Dates: start: 20091223, end: 20100101

REACTIONS (7)
  - ANXIETY [None]
  - DYSPNOEA [None]
  - FEELING HOT [None]
  - HEADACHE [None]
  - HYPOAESTHESIA [None]
  - PAIN IN JAW [None]
  - PARAESTHESIA [None]
